FAERS Safety Report 12463696 (Version 1)
Quarter: 2016Q2

REPORT INFORMATION
  Report Type: Spontaneous
  Country: None (occurrence: None)
  Receive Date: 20160613
  Receipt Date: 20160613
  Transmission Date: 20160815
  Serious: Yes (Other)
  Sender: FDA-Public Use
  Company Number: None

PATIENT
  Age: 60 Year
  Sex: Female
  Weight: 90.72 kg

DRUGS (1)
  1. CYMBALTA [Suspect]
     Active Substance: DULOXETINE HYDROCHLORIDE
     Indication: FIBROMYALGIA
     Dates: start: 20121001, end: 20160430

REACTIONS (8)
  - Depressed mood [None]
  - Irritability [None]
  - Pain [None]
  - Migraine [None]
  - Anger [None]
  - Fatigue [None]
  - Sleep disorder [None]
  - Anxiety [None]
